FAERS Safety Report 6646877-0 (Version None)
Quarter: 2010Q1

REPORT INFORMATION
  Report Type: 
  Country: None (occurrence: None)
  Receive Date: 20100323
  Receipt Date: 20100322
  Transmission Date: 20100710
  Serious: Yes (Hospitalization, Other)
  Sender: FDA-Public Use
  Company Number: GB-JNJFOC-20080603372

PATIENT
  Sex: Female
  Weight: 63 kg

DRUGS (10)
  1. REMICADE [Suspect]
     Indication: RHEUMATOID ARTHRITIS
     Route: 042
  2. PREDNISOLONE [Concomitant]
  3. CO-DYDRAMOL [Concomitant]
     Route: 048
  4. HORMONE REPLACEMENT THERAPY [Concomitant]
  5. PLAQUENIL [Concomitant]
  6. SULFASALAZINE [Concomitant]
  7. METHOTREXATE [Concomitant]
     Route: 048
  8. VIOXX [Concomitant]
  9. VOLTAREN [Concomitant]
  10. FOLIC ACID [Concomitant]
     Route: 048

REACTIONS (2)
  - BONE CYST [None]
  - RHEUMATOID ARTHRITIS [None]
